FAERS Safety Report 14918104 (Version 1)
Quarter: 2018Q2

REPORT INFORMATION
  Report Type: Spontaneous
  Country: US (occurrence: US)
  Receive Date: 20180502
  Receipt Date: 20180502
  Transmission Date: 20180711
  Serious: No
  Sender: FDA-Public Use
  Company Number: None

PATIENT
  Age: 78 Year
  Sex: Female
  Weight: 64.35 kg

DRUGS (6)
  1. VAGIFEM [Concomitant]
     Active Substance: ESTRADIOL
     Dates: start: 20141107, end: 20180502
  2. VITAMIN B12 [Concomitant]
     Active Substance: CYANOCOBALAMIN
     Dates: start: 20170801, end: 20180502
  3. VITAMIN D3 [Concomitant]
     Active Substance: CHOLECALCIFEROL
     Dates: start: 20150501, end: 20180502
  4. MELOXICAM. [Suspect]
     Active Substance: MELOXICAM
     Indication: ARTHRITIS
     Route: 048
     Dates: start: 20180118, end: 20180502
  5. ALENDRONATE SODIUM. [Suspect]
     Active Substance: ALENDRONATE SODIUM
     Indication: OSTEOPOROSIS
     Route: 048
     Dates: start: 20171017, end: 20180403
  6. OMEPRAZOLE. [Concomitant]
     Active Substance: OMEPRAZOLE
     Dates: start: 20160501, end: 20180502

REACTIONS (2)
  - Mouth ulceration [None]
  - Diarrhoea [None]

NARRATIVE: CASE EVENT DATE: 20180429
